FAERS Safety Report 8806396 (Version 1)
Quarter: 2012Q4

REPORT INFORMATION
  Report Type: Spontaneous
  Country: US (occurrence: None)
  Receive Date: 20120918
  Receipt Date: 20120918
  Transmission Date: 20130627
  Serious: Yes (Hospitalization, Other)
  Sender: FDA-Public Use
  Company Number: 2012P1056370

PATIENT
  Age: 12 Year
  Sex: Male
  Weight: 62 kg

DRUGS (5)
  1. CLINDAMYCIN [Suspect]
     Indication: HEMODYNAMIC INSTABILITY
     Route: 042
  2. CLINDAMYCIN [Suspect]
     Indication: PNEUMONIA NECROTIZING
     Route: 042
  3. CLINDAMYCIN [Suspect]
     Indication: HEMODYNAMIC INSTABILITY
     Route: 042
  4. CLINDAMYCIN [Suspect]
     Indication: PNEUMONIA NECROTIZING
     Route: 042
  5. VANCOMYCIN [Concomitant]

REACTIONS (6)
  - Renal failure acute [None]
  - Hyperphosphataemia [None]
  - Leg amputation [None]
  - Hypoperfusion [None]
  - Peritoneal dialysis [None]
  - Medical device complication [None]
